FAERS Safety Report 4723789-0 (Version None)
Quarter: 2005Q3

REPORT INFORMATION
  Report Type: 
  Country: None (occurrence: None)
  Receive Date: 20050722
  Receipt Date: 20050714
  Transmission Date: 20060218
  Serious: Yes (Congenital Anomaly)
  Sender: FDA-Public Use
  Company Number: 05-07-1194

PATIENT
  Sex: Female
  Weight: 48 kg

DRUGS (3)
  1. DIAZEPAM [Suspect]
     Dosage: 5MG TRANSPLACENTAL
     Route: 064
  2. PROPRANOLOL [Suspect]
     Dosage: 40 MG TRANSPLACENTAL
     Route: 064
  3. FLUOXETINE [Suspect]
     Dosage: 40MG TRANSPLACENTAL
     Route: 064

REACTIONS (4)
  - DRUG EXPOSURE DURING PREGNANCY [None]
  - FOETAL DISORDER [None]
  - GASTROSCHISIS [None]
  - UNINTENDED PREGNANCY [None]
